FAERS Safety Report 8834134 (Version 1)
Quarter: 2012Q4

REPORT INFORMATION
  Report Type: 
  Country: TN (occurrence: TN)
  Receive Date: 20121010
  Receipt Date: 20121010
  Transmission Date: 20130627
  Serious: Yes (Other)
  Sender: FDA-Public Use
  Company Number: PHHY2012TN089121

PATIENT
  Sex: Male

DRUGS (2)
  1. EXJADE [Suspect]
     Indication: THALASSAEMIA BETA
     Dosage: 1 g, daily
     Route: 048
     Dates: start: 20100928
  2. DESFERAL [Concomitant]
     Dosage: 1 g, BID

REACTIONS (3)
  - Cardiac discomfort [Unknown]
  - Hepatic lesion [Unknown]
  - Iron overload [Unknown]
